FAERS Safety Report 13679919 (Version 1)
Quarter: 2017Q2

REPORT INFORMATION
  Report Type: Spontaneous
  Country: DE (occurrence: DE)
  Receive Date: 20170622
  Receipt Date: 20170622
  Transmission Date: 20170830
  Serious: No
  Sender: FDA-Public Use
  Company Number: DE-BIOGEN-2017BV000121

PATIENT
  Sex: Male

DRUGS (1)
  1. ELOCTA [Suspect]
     Active Substance: EFMOROCTOCOG ALFA
     Indication: FACTOR VIII DEFICIENCY
     Dosage: EVERY 2-3 DAYS IF NECESSARY
     Route: 042

REACTIONS (2)
  - Haematoma [Unknown]
  - Ear haemorrhage [Unknown]
